FAERS Safety Report 6746739-4 (Version None)
Quarter: 2010Q2

REPORT INFORMATION
  Report Type: 
  Country: None (occurrence: None)
  Receive Date: 20100528
  Receipt Date: 20090617
  Transmission Date: 20101027
  Serious: No
  Sender: FDA-Public Use
  Company Number: A0793173A

PATIENT
  Sex: Female

DRUGS (2)
  1. VENTOLIN HFA [Suspect]
     Route: 055
  2. PROAIR HFA [Suspect]

REACTIONS (3)
  - DIZZINESS [None]
  - MALAISE [None]
  - NAUSEA [None]
